FAERS Safety Report 5692811-X (Version None)
Quarter: 2008Q2

REPORT INFORMATION
  Report Type: 
  Country: None (occurrence: None)
  Receive Date: 20080401
  Receipt Date: 20080319
  Transmission Date: 20081010
  Serious: Yes (Hospitalization)
  Sender: FDA-Public Use
  Company Number: 2008AL001782

PATIENT
  Age: 40 Year
  Sex: Male

DRUGS (2)
  1. CARBAMAZEPINE [Suspect]
  2. ACYCLOVIR [Concomitant]

REACTIONS (12)
  - ANTEROGRADE AMNESIA [None]
  - BLOOD GLUCOSE INCREASED [None]
  - CEREBRAL ATROPHY [None]
  - CONFUSIONAL STATE [None]
  - DISTURBANCE IN ATTENTION [None]
  - ENCEPHALITIS HERPES [None]
  - ERYTHEMA MULTIFORME [None]
  - GRAND MAL CONVULSION [None]
  - HYPOGAMMAGLOBULINAEMIA [None]
  - LYMPHOPENIA [None]
  - PYREXIA [None]
  - TREATMENT NONCOMPLIANCE [None]
